FAERS Safety Report 16481976 (Version 1)
Quarter: 2019Q2

REPORT INFORMATION
  Report Type: Spontaneous
  Country: DE (occurrence: DE)
  Receive Date: 20190627
  Receipt Date: 20190627
  Transmission Date: 20190711
  Serious: Yes (Other)
  Sender: FDA-Public Use
  Company Number: DE-SA-2019SA041034

PATIENT
  Age: 42 Year
  Sex: Female
  Weight: 92 kg

DRUGS (3)
  1. AUBAGIO [Suspect]
     Active Substance: TERIFLUNOMIDE
     Indication: ENCEPHALOMYELITIS
     Dosage: 14 MG, QD
     Route: 048
     Dates: start: 201812
  2. L-THYROXINE [LEVOTHYROXINE] [Concomitant]
     Active Substance: LEVOTHYROXINE
     Dosage: 1 DF, QD
  3. DEKRISTOL [Concomitant]
     Active Substance: CHOLECALCIFEROL
     Indication: VITAMIN D DEFICIENCY
     Dosage: 1 DF, QW
     Route: 048
     Dates: start: 2016

REACTIONS (10)
  - Neuropathy peripheral [Not Recovered/Not Resolved]
  - Sensory disturbance [Recovering/Resolving]
  - Hyporeflexia [Unknown]
  - Hepatic enzyme decreased [Unknown]
  - Encephalomyelitis [Unknown]
  - Hypoaesthesia [Unknown]
  - Blood count abnormal [Unknown]
  - Polyneuropathy [Unknown]
  - Product use in unapproved indication [Unknown]
  - Hypoaesthesia [Unknown]

NARRATIVE: CASE EVENT DATE: 201812
